FAERS Safety Report 12591680 (Version 1)
Quarter: 2016Q3

REPORT INFORMATION
  Report Type: Spontaneous
  Country: US (occurrence: None)
  Receive Date: 20160725
  Receipt Date: 20160725
  Transmission Date: 20161109
  Serious: Yes (Life-Threatening, Hospitalization, Disabling, Other)
  Sender: FDA-Public Use
  Company Number: None

PATIENT
  Age: 46 Year
  Sex: Male
  Weight: 81.65 kg

DRUGS (2)
  1. ACCUTANE [Suspect]
     Active Substance: ISOTRETINOIN
     Indication: ACNE
     Dates: start: 20160101, end: 20160721
  2. RISPEDDAL [Concomitant]

REACTIONS (4)
  - Depression [None]
  - Facial pain [None]
  - Migraine [None]
  - Irritable bowel syndrome [None]

NARRATIVE: CASE EVENT DATE: 20160721
